FAERS Safety Report 8354949-8 (Version None)
Quarter: 2012Q2

REPORT INFORMATION
  Report Type: 
  Country: None (occurrence: None)
  Receive Date: 20120511
  Receipt Date: 20110315
  Transmission Date: 20120825
  Serious: No
  Sender: FDA-Public Use
  Company Number: US-TEVA-2011001201

PATIENT
  Sex: Male
  Weight: 86.26 kg

DRUGS (4)
  1. PROTONIX [Concomitant]
  2. FIORINAL [Concomitant]
     Dates: start: 19960101
  3. NUVIGIL [Suspect]
     Dosage: 75 MILLIGRAM;
     Route: 048
     Dates: start: 20100101
  4. NUVIGIL [Suspect]
     Indication: SLEEP APNOEA SYNDROME
     Dosage: 150 MILLIGRAM;
     Route: 048
     Dates: start: 20100101

REACTIONS (3)
  - INSOMNIA [None]
  - LIGAMENT SPRAIN [None]
  - MUSCLE SPASMS [None]
